FAERS Safety Report 13094732 (Version 4)
Quarter: 2017Q1

REPORT INFORMATION
  Report Type: Spontaneous
  Country: US (occurrence: US)
  Receive Date: 20170106
  Receipt Date: 20170222
  Transmission Date: 20170428
  Serious: Yes (Hospitalization, Other)
  Sender: FDA-Public Use
  Company Number: US-JNJFOC-20170104251

PATIENT
  Sex: Female

DRUGS (17)
  1. SAVELLA [Concomitant]
     Active Substance: MILNACIPRAN HYDROCHLORIDE
     Route: 065
     Dates: start: 20130819
  2. CYMBALTA [Concomitant]
     Active Substance: DULOXETINE HYDROCHLORIDE
     Route: 065
     Dates: end: 201612
  3. XYREM [Suspect]
     Active Substance: SODIUM OXYBATE
     Indication: NARCOLEPSY
     Route: 048
     Dates: start: 200804, end: 2013
  4. TETRACYCLINE [Concomitant]
     Active Substance: TETRACYCLINE
     Route: 065
     Dates: end: 201612
  5. ATENOLOL. [Concomitant]
     Active Substance: ATENOLOL
     Route: 065
     Dates: end: 201612
  6. ATORVASTATIN CALCIUM. [Concomitant]
     Active Substance: ATORVASTATIN CALCIUM
     Route: 065
  7. TRAMADOL. [Suspect]
     Active Substance: TRAMADOL
     Indication: PRODUCT USED FOR UNKNOWN INDICATION
     Route: 065
     Dates: end: 201612
  8. HCTZ [Concomitant]
     Active Substance: HYDROCHLOROTHIAZIDE
     Route: 065
     Dates: end: 201612
  9. AMBIEN [Suspect]
     Active Substance: ZOLPIDEM TARTRATE
     Indication: PRODUCT USED FOR UNKNOWN INDICATION
     Route: 065
     Dates: end: 201612
  10. PIROXICAM. [Concomitant]
     Active Substance: PIROXICAM
     Route: 065
     Dates: start: 20131018, end: 201612
  11. CALCIUM [Concomitant]
     Active Substance: CALCIUM
     Route: 065
     Dates: end: 201612
  12. NEXIUM [Concomitant]
     Active Substance: ESOMEPRAZOLE MAGNESIUM
     Route: 065
     Dates: end: 201612
  13. XYREM [Suspect]
     Active Substance: SODIUM OXYBATE
     Indication: NARCOLEPSY
     Route: 048
     Dates: start: 200710, end: 200712
  14. LYRICA [Concomitant]
     Active Substance: PREGABALIN
     Route: 065
     Dates: end: 201612
  15. XYREM [Suspect]
     Active Substance: SODIUM OXYBATE
     Indication: NARCOLEPSY
     Dosage: ORAL SOLUTION
     Route: 048
     Dates: start: 200712, end: 2008
  16. VITAMIN D [Concomitant]
     Active Substance: CHOLECALCIFEROL
     Route: 065
     Dates: end: 201612
  17. BACTRIM [Suspect]
     Active Substance: SULFAMETHOXAZOLE\TRIMETHOPRIM
     Indication: PRODUCT USED FOR UNKNOWN INDICATION
     Route: 065

REACTIONS (13)
  - Renal failure [Unknown]
  - Diaphragmatic hernia [Unknown]
  - Wrong technique in product usage process [Unknown]
  - Pain [Not Recovered/Not Resolved]
  - Hospitalisation [Unknown]
  - Seizure [Unknown]
  - Diabetes mellitus [Unknown]
  - Hypoparathyroidism [Unknown]
  - Scoliosis [Unknown]
  - Therapeutic response unexpected [Unknown]
  - Pre-existing condition improved [Unknown]
  - Haematoma [Unknown]
  - Fall [Recovered/Resolved]

NARRATIVE: CASE EVENT DATE: 2012
